FAERS Safety Report 12629279 (Version 1)
Quarter: 2016Q3

REPORT INFORMATION
  Report Type: Spontaneous
  Country: US (occurrence: None)
  Receive Date: 20160805
  Receipt Date: 20160805
  Transmission Date: 20161109
  Serious: Yes (Hospitalization)
  Sender: FDA-Public Use
  Company Number: None

PATIENT
  Age: 90 Year
  Sex: Male
  Weight: 86.4 kg

DRUGS (1)
  1. SPIRONOLACTONE. [Suspect]
     Active Substance: SPIRONOLACTONE
     Indication: HYPERTENSION
     Route: 048
     Dates: end: 20160606

REACTIONS (5)
  - Inguinal hernia [None]
  - Acidosis hyperchloraemic [None]
  - Renal impairment [None]
  - Hyperkalaemia [None]
  - Electrocardiogram change [None]

NARRATIVE: CASE EVENT DATE: 20160604
